FAERS Safety Report 9137477 (Version 1)
Quarter: 2013Q1

REPORT INFORMATION
  Report Type: Spontaneous
  Country: US (occurrence: US)
  Receive Date: 20130219
  Receipt Date: 20130219
  Transmission Date: 20140127
  Serious: No
  Sender: FDA-Public Use
  Company Number: US-BRISTOL-MYERS SQUIBB COMPANY-16830333

PATIENT
  Age: 68 Year
  Sex: Female

DRUGS (6)
  1. ORENCIA [Suspect]
     Indication: RHEUMATOID ARTHRITIS
     Dosage: LAST INF:13-JUL-2012?TOTAL INF:2
     Route: 042
     Dates: start: 20120615
  2. LISINOPRIL [Concomitant]
  3. FISH OIL [Concomitant]
     Dosage: 1DF: 4CAPS/DAY
  4. MULTIVITAMIN [Concomitant]
  5. ASPIRIN [Concomitant]
  6. CALCIUM [Concomitant]

REACTIONS (1)
  - Vascular pain [Not Recovered/Not Resolved]
